FAERS Safety Report 23153811 (Version 1)
Quarter: 2023Q4

REPORT INFORMATION
  Report Type: Spontaneous
  Country: CA (occurrence: CA)
  Receive Date: 20231107
  Receipt Date: 20231107
  Transmission Date: 20240110
  Serious: Yes (Hospitalization, Disabling)
  Sender: FDA-Public Use
  Company Number: CA-MYLANLABS-2023M1117731

PATIENT
  Age: 38 Year
  Sex: Male
  Weight: 113 kg

DRUGS (3)
  1. ESCITALOPRAM [Suspect]
     Active Substance: ESCITALOPRAM OXALATE
     Indication: Anxiety
     Dosage: 10 MILLIGRAM, QD (1 EVERY 1 DAYS)
     Route: 048
  2. ESCITALOPRAM [Suspect]
     Active Substance: ESCITALOPRAM OXALATE
     Dosage: 5 MILLIGRAM, QD (1 EVERY 1 DAYS)
     Route: 048
  3. ATIVAN [Concomitant]
     Active Substance: LORAZEPAM
     Dosage: UNK
     Route: 065

REACTIONS (22)
  - Antidepressant discontinuation syndrome [Recovering/Resolving]
  - Balance disorder [Recovering/Resolving]
  - Body temperature increased [Recovering/Resolving]
  - Cognitive disorder [Recovering/Resolving]
  - Condition aggravated [Recovering/Resolving]
  - Dyschromatopsia [Recovering/Resolving]
  - Halo vision [Recovering/Resolving]
  - Mental impairment [Recovering/Resolving]
  - Nervous system disorder [Recovering/Resolving]
  - Photopsia [Recovering/Resolving]
  - Sensory loss [Recovering/Resolving]
  - Visual field defect [Recovering/Resolving]
  - Visual impairment [Recovering/Resolving]
  - Visual snow syndrome [Recovering/Resolving]
  - Crying [Recovering/Resolving]
  - Vision blurred [Recovering/Resolving]
  - Depression [Recovering/Resolving]
  - Diplopia [Recovering/Resolving]
  - Dizziness [Recovering/Resolving]
  - Insomnia [Recovering/Resolving]
  - Suicidal ideation [Recovering/Resolving]
  - Tachycardia [Recovering/Resolving]
